FAERS Safety Report 13072335 (Version 1)
Quarter: 2016Q4

REPORT INFORMATION
  Report Type: Spontaneous
  Country: ES (occurrence: ES)
  Receive Date: 20161229
  Receipt Date: 20161229
  Transmission Date: 20170207
  Serious: Yes (Death, Hospitalization, Other)
  Sender: FDA-Public Use
  Company Number: ES-ELI_LILLY_AND_COMPANY-ES201612008096

PATIENT
  Age: 64 Year
  Sex: Male

DRUGS (1)
  1. PRASUGREL HYDROCHLORIDE [Suspect]
     Active Substance: PRASUGREL HYDROCHLORIDE
     Indication: PRODUCT USED FOR UNKNOWN INDICATION
     Dosage: 10 MG, QD
     Route: 065

REACTIONS (12)
  - Anaemia [Unknown]
  - Appendicitis [Unknown]
  - Hypotension [Unknown]
  - Confusional state [Recovered/Resolved]
  - Speech disorder [Unknown]
  - Thrombotic microangiopathy [Fatal]
  - Stupor [Recovered/Resolved]
  - Oliguria [Unknown]
  - Acute kidney injury [Recovering/Resolving]
  - Headache [Recovered/Resolved]
  - Thrombotic thrombocytopenic purpura [Unknown]
  - Hypoaesthesia [Unknown]
